FAERS Safety Report 10024557 (Version 2)
Quarter: 2014Q1

REPORT INFORMATION
  Report Type: Spontaneous
  Country: US (occurrence: US)
  Receive Date: 20140320
  Receipt Date: 20140331
  Transmission Date: 20141002
  Serious: No
  Sender: FDA-Public Use
  Company Number: US-009507513-1403USA000673

PATIENT
  Age: 93 Year
  Sex: Male
  Weight: 72.56 kg

DRUGS (5)
  1. CLARITIN [Suspect]
     Indication: RHINORRHOEA
     Dosage: 10 MG, QD
     Route: 048
     Dates: start: 20140203, end: 20140217
  2. CLARITIN [Suspect]
     Indication: NASAL CONGESTION
  3. METOPROLOL [Concomitant]
     Indication: HYPERTENSION
     Dosage: UNK, UNKNOWN
  4. OXYBUTYNIN [Concomitant]
     Indication: BLADDER SPASM
     Dosage: UNK, UNKNOWN
  5. LASIX (FUROSEMIDE SODIUM) [Concomitant]
     Indication: RENAL FAILURE
     Dosage: UNK, UNKNOWN

REACTIONS (1)
  - Drug ineffective [Unknown]
